FAERS Safety Report 10793987 (Version 1)
Quarter: 2015Q1

REPORT INFORMATION
  Report Type: Spontaneous
  Country: US (occurrence: US)
  Receive Date: 20150213
  Receipt Date: 20150213
  Transmission Date: 20150721
  Serious: Yes (Other)
  Sender: FDA-Public Use
  Company Number: US-ELI_LILLY_AND_COMPANY-US201502001366

PATIENT
  Sex: Female

DRUGS (2)
  1. CYMBALTA [Suspect]
     Active Substance: DULOXETINE HYDROCHLORIDE
     Indication: FIBROMYALGIA
  2. CYMBALTA [Suspect]
     Active Substance: DULOXETINE HYDROCHLORIDE
     Indication: DEPRESSION
     Dosage: UNK
     Dates: start: 20051108, end: 201402

REACTIONS (17)
  - Wrong technique in drug usage process [Unknown]
  - Suicidal ideation [Unknown]
  - Nausea [Unknown]
  - Panic attack [Unknown]
  - Insomnia [Unknown]
  - Aggression [Unknown]
  - Vertigo [Unknown]
  - Amnesia [Unknown]
  - Mood swings [Unknown]
  - Agitation [Unknown]
  - Irritability [Unknown]
  - Crying [Unknown]
  - Disorientation [Unknown]
  - Dizziness [Unknown]
  - Confusional state [Unknown]
  - Paraesthesia [Unknown]
  - Drug withdrawal syndrome [Unknown]

NARRATIVE: CASE EVENT DATE: 201402
